FAERS Safety Report 5273155-7 (Version None)
Quarter: 2007Q1

REPORT INFORMATION
  Report Type: 
  Country: None (occurrence: None)
  Receive Date: 20070322
  Receipt Date: 20070314
  Transmission Date: 20070707
  Serious: Yes (Death)
  Sender: FDA-Public Use
  Company Number: IN-BOEHRINGER INGELHEIM PHARMACEUTICALS, INC.-2007-DE-01528GD

PATIENT
  Age: 38 Year
  Sex: Male

DRUGS (3)
  1. NEVIRAPINE [Suspect]
     Indication: HIV INFECTION
     Dates: start: 20051201, end: 20060101
  2. ZIDOVUDINE [Suspect]
     Indication: HIV INFECTION
     Dates: start: 20051201, end: 20060101
  3. LAMIVUDINE [Concomitant]
     Indication: HIV INFECTION
     Dates: start: 20051201, end: 20060101

REACTIONS (10)
  - ABDOMINAL PAIN [None]
  - ANURIA [None]
  - ASCITES [None]
  - COAGULATION TEST ABNORMAL [None]
  - DIARRHOEA [None]
  - HEPATITIS FULMINANT [None]
  - HYPOVOLAEMIC SHOCK [None]
  - NAUSEA [None]
  - PYREXIA [None]
  - VOMITING [None]
